FAERS Safety Report 7965030 (Version 3)
Quarter: 2013Q3

REPORT INFORMATION
  Report Type: Spontaneous
  Country: US (occurrence: US)
  Receive Date: 20110527
  Receipt Date: 20130820
  Transmission Date: 20140515
  Serious: Yes (Other)
  Sender: FDA-Public Use
  Company Number: US-JNJFOC-20110507628

PATIENT
  Sex: Female
  Weight: 128.14 kg

DRUGS (10)
  1. REMICADE [Suspect]
     Indication: RHEUMATOID ARTHRITIS
     Route: 042
     Dates: start: 20100916, end: 20110516
  2. NAPROXEN [Concomitant]
  3. VICODIN [Concomitant]
  4. LEVOTHYROXINE [Concomitant]
     Dosage: 125 MCG 1 TAB EVERY MORNING
  5. ULTRAM [Concomitant]
  6. PROZAC [Concomitant]
  7. SULFASALAZINE [Concomitant]
  8. MTX [Concomitant]
  9. PREDNISONE [Concomitant]
  10. FOLIC ACID [Concomitant]

REACTIONS (7)
  - Oxygen saturation decreased [Recovered/Resolved]
  - Dyspnoea [Recovered/Resolved]
  - Heart rate increased [Recovered/Resolved]
  - Blood pressure increased [Recovered/Resolved]
  - Infusion related reaction [Recovered/Resolved]
  - Sinus congestion [Recovered/Resolved]
  - Flushing [Recovered/Resolved]
